FAERS Safety Report 9794327 (Version 2)
Quarter: 2014Q2

REPORT INFORMATION
  Report Type: Report from Study
  Country: FR (occurrence: FR)
  Receive Date: 20140102
  Receipt Date: 20140620
  Transmission Date: 20141212
  Serious: Yes (Hospitalization)
  Sender: FDA-Public Use
  Company Number: PHHO2013FR016431

PATIENT
  Age: 73 Year
  Sex: Male
  Weight: 73 kg

DRUGS (11)
  1. ZOLEDRONATE [Suspect]
     Dosage: UNK UKN, UNK
     Dates: start: 201004, end: 20120907
  2. PERINDOPRIL [Concomitant]
     Indication: HYPERTENSION
     Dosage: UNK UKN, UNK
     Route: 048
  3. LANZOR [Concomitant]
     Indication: PROPHYLAXIS
     Dosage: UNK UKN, UNK
     Route: 048
  4. CRESTOR [Concomitant]
     Indication: HYPERCHOLESTEROLAEMIA
     Dosage: 1 DF, ONE DAY
     Route: 048
  5. PARACETAMOL [Concomitant]
     Indication: PAIN IN JAW
     Dosage: 500 MG, UNK
     Route: 048
     Dates: start: 20130607
  6. ZELITREX [Concomitant]
     Indication: HERPES ZOSTER
     Dosage: 1000 MG, TID
     Route: 048
     Dates: start: 20130919
  7. VOLTAREN//DICLOFENAC [Concomitant]
     Indication: OSTEOARTHRITIS
     Dosage: 100 MG, UNK
     Route: 048
     Dates: start: 200210
  8. DAFALGAN [Concomitant]
     Indication: PAIN
     Dosage: 500 MG, UNK
     Route: 048
     Dates: start: 200210
  9. LAMALINE [Concomitant]
     Indication: BACK PAIN
     Dosage: UNK UKN, UNK
     Route: 048
     Dates: start: 201111
  10. ZOLADEX [Concomitant]
     Dosage: 10.8 MG ONCE IN THREE MONTH
     Route: 058
     Dates: start: 200811
  11. ERYTROMYCIN [Concomitant]
     Indication: STAPHYLOCOCCAL INFECTION
     Dosage: UNK UKN, UNK
     Route: 048
     Dates: start: 201311, end: 201312

REACTIONS (8)
  - Osteonecrosis of jaw [Recovered/Resolved]
  - Osteitis [Recovered/Resolved]
  - Actinomycosis [Recovered/Resolved]
  - Toothache [Unknown]
  - Pain in jaw [Unknown]
  - Abscess [Unknown]
  - Infection [Recovered/Resolved]
  - Pyrexia [Unknown]
